FAERS Safety Report 5232292-3 (Version None)
Quarter: 2007Q2

REPORT INFORMATION
  Report Type: 
  Country: None (occurrence: None)
  Receive Date: 20070207
  Receipt Date: 20070205
  Transmission Date: 20071010
  Serious: Yes (Hospitalization)
  Sender: FDA-Public Use
  Company Number: US-JNJFOC-20070106969

PATIENT
  Age: 48 Year
  Sex: Male

DRUGS (31)
  1. PREZISTA [Suspect]
     Indication: HIV INFECTION
     Route: 048
  2. MK0518 [Suspect]
     Indication: HIV INFECTION
     Route: 048
  3. PROTONIX [Concomitant]
     Route: 065
  4. ZYVOX [Concomitant]
     Indication: INFECTION
     Route: 065
  5. TRUVADA [Concomitant]
     Indication: HIV INFECTION
     Route: 048
  6. NAPROXEN [Concomitant]
     Route: 065
  7. IMODIUM [Concomitant]
     Route: 065
  8. ACIPHEX [Concomitant]
     Route: 065
  9. HYZAAR [Concomitant]
     Route: 065
  10. BETHANECHOL [Concomitant]
     Route: 065
  11. MEGACE [Concomitant]
     Route: 065
  12. AMBIEN CR [Concomitant]
     Route: 065
  13. TRAZODONE HCL [Concomitant]
     Route: 065
  14. LEXAPRO [Concomitant]
     Route: 065
  15. REMERON [Concomitant]
     Route: 065
  16. BACTRIM DS [Concomitant]
     Route: 048
  17. AZITHROMYCIN [Concomitant]
     Route: 065
  18. NEURONTIN [Concomitant]
     Route: 065
  19. DIFLUCAN [Concomitant]
     Route: 065
  20. SODIUM BICARBONATE [Concomitant]
     Route: 065
  21. DARVOCET-N 100 [Concomitant]
     Route: 065
  22. POTASSIUM CHLORIDE [Concomitant]
     Route: 065
  23. CLONAZEPAM [Concomitant]
     Route: 065
  24. ARANESP [Concomitant]
     Route: 065
  25. DUONEB [Concomitant]
     Route: 065
  26. METOPROLOL SUCCINATE [Concomitant]
     Route: 065
  27. FERROUS SULFATE TAB [Concomitant]
     Route: 065
  28. COMPAZINE [Concomitant]
     Route: 065
  29. CLONIDINE [Concomitant]
     Route: 065
  30. DULCOLAX [Concomitant]
     Route: 065
  31. NICOTINE [Concomitant]
     Route: 061

REACTIONS (2)
  - HEMIPARESIS [None]
  - MENTAL STATUS CHANGES [None]
